FAERS Safety Report 17660829 (Version 4)
Quarter: 2021Q1

REPORT INFORMATION
  Report Type: Spontaneous
  Country: US (occurrence: US)
  Receive Date: 20200413
  Receipt Date: 20210322
  Transmission Date: 20210419
  Serious: No
  Sender: FDA-Public Use
  Company Number: US-SA-2020SA094568

PATIENT
  Age: 38 Year
  Sex: Female

DRUGS (1)
  1. DUPIXENT [Suspect]
     Active Substance: DUPILUMAB
     Dosage: 300 MG, QOW
     Route: 058
     Dates: start: 20200207

REACTIONS (8)
  - Oropharyngeal pain [Unknown]
  - Photosensitivity reaction [Unknown]
  - Skin irritation [Unknown]
  - Therapeutic response shortened [Unknown]
  - Injection site swelling [Unknown]
  - Drug ineffective [Unknown]
  - Injection site pain [Unknown]
  - Rash [Unknown]

NARRATIVE: CASE EVENT DATE: 2020
